FAERS Safety Report 18434547 (Version 1)
Quarter: 2020Q4

REPORT INFORMATION
  Report Type: Spontaneous
  Country: CN (occurrence: CN)
  Receive Date: 20201028
  Receipt Date: 20201028
  Transmission Date: 20210114
  Serious: Yes (Other)
  Sender: FDA-Public Use
  Company Number: CN-BAXTER-2020BAX021432

PATIENT
  Age: 52 Year
  Sex: Female
  Weight: 55 kg

DRUGS (14)
  1. 20% MANNITOL INJECTION [Suspect]
     Active Substance: MANNITOL
     Dosage: DOSE REINTRODUCED
     Route: 041
  2. LANSOPRAZOLE. [Suspect]
     Active Substance: LANSOPRAZOLE
     Dosage: LANSOPRAZOLE FOR INJECTION 30MG + 100ML SALINE, DOSE REINTRODUCED
     Route: 041
  3. SODIUM CHLORIDE. [Suspect]
     Active Substance: SODIUM CHLORIDE
     Indication: MEDICATION DILUTION
     Dosage: LANSOPRAZOLE FOR INJECTION 30MG + 100ML SALINE
     Route: 041
     Dates: start: 20201007, end: 20201010
  4. INDOMETHACIN. [Suspect]
     Active Substance: INDOMETHACIN
     Indication: PYREXIA
     Dosage: SUSTAINED-RELEASE CAPSULES
     Route: 048
     Dates: start: 20201007, end: 20201010
  5. AMBROXOL HYDROCHLORIDE [Suspect]
     Active Substance: AMBROXOL HYDROCHLORIDE
     Dosage: DOSE REINTRODUCED
     Route: 041
  6. SODIUM VALPROATE [Suspect]
     Active Substance: VALPROATE SODIUM
     Dosage: SUSTAINED-RELEASE TABLETS, DOSE REINTRODUCED
     Route: 048
  7. 20% MANNITOL INJECTION [Suspect]
     Active Substance: MANNITOL
     Indication: INTRACRANIAL PRESSURE INCREASED
     Route: 041
     Dates: start: 20201006, end: 20201010
  8. SODIUM CHLORIDE. [Suspect]
     Active Substance: SODIUM CHLORIDE
     Dosage: AMBROXOL HYDROCHLORIDE INJECTION 60MG + 100ML SALINE, DOSE REINTRODUCED
     Route: 041
  9. SODIUM VALPROATE [Suspect]
     Active Substance: VALPROATE SODIUM
     Indication: SEIZURE PROPHYLAXIS
     Dosage: SUSTAINED-RELEASE TABLETS
     Route: 048
     Dates: start: 20201008, end: 20201009
  10. INDOMETHACIN. [Suspect]
     Active Substance: INDOMETHACIN
     Dosage: SUSTAINED-RELEASE CAPSULES, DOSE REINTRODUCED
     Route: 048
  11. AMBROXOL HYDROCHLORIDE [Suspect]
     Active Substance: AMBROXOL HYDROCHLORIDE
     Indication: SPUTUM ABNORMAL
     Route: 041
     Dates: start: 20201007, end: 20201010
  12. SODIUM CHLORIDE. [Suspect]
     Active Substance: SODIUM CHLORIDE
     Dosage: AMBROXOL HYDROCHLORIDE INJECTION 60MG + 100ML SALINE
     Route: 041
     Dates: start: 20201007, end: 20201010
  13. LANSOPRAZOLE. [Suspect]
     Active Substance: LANSOPRAZOLE
     Indication: PROPHYLAXIS
     Dosage: LANSOPRAZOLE FOR INJECTION 30MG + 100ML SALINE
     Route: 041
     Dates: start: 20201007, end: 20201010
  14. SODIUM CHLORIDE. [Suspect]
     Active Substance: SODIUM CHLORIDE
     Dosage: LANSOPRAZOLE FOR INJECTION 30MG + 100ML SALINE,  DOSE REINTRODUCED
     Route: 041

REACTIONS (2)
  - Rash rubelliform [Recovering/Resolving]
  - Pruritus [Recovered/Resolved]

NARRATIVE: CASE EVENT DATE: 20201009
